FAERS Safety Report 10744965 (Version 1)
Quarter: 2015Q1

REPORT INFORMATION
  Report Type: Spontaneous
  Country: US (occurrence: None)
  Receive Date: 20150126
  Receipt Date: 20150126
  Transmission Date: 20150721
  Serious: No
  Sender: FDA-Public Use
  Company Number: None

PATIENT
  Age: 36 Year
  Sex: Female
  Weight: 74.84 kg

DRUGS (1)
  1. AUGMENTIN [Suspect]
     Active Substance: AMOXICILLIN\CLAVULANATE POTASSIUM
     Indication: SINUSITIS
     Dosage: 1 TAB 2XS DAY
     Route: 048
     Dates: start: 20150122, end: 20150123

REACTIONS (12)
  - Hypoaesthesia oral [None]
  - Palpitations [None]
  - Renal pain [None]
  - Back disorder [None]
  - Insomnia [None]
  - Headache [None]
  - Oral disorder [None]
  - Abdominal pain upper [None]
  - Photosensitivity reaction [None]
  - Fatigue [None]
  - Feeling abnormal [None]
  - Thinking abnormal [None]

NARRATIVE: CASE EVENT DATE: 20150123
